FAERS Safety Report 9719428 (Version 1)
Quarter: 2013Q4

REPORT INFORMATION
  Report Type: Report from Study
  Country: US (occurrence: US)
  Receive Date: 20131128
  Receipt Date: 20131128
  Transmission Date: 20140711
  Serious: Yes (Other)
  Sender: FDA-Public Use
  Company Number: US-ROCHE-1310247

PATIENT
  Sex: Male
  Weight: 63 kg

DRUGS (2)
  1. NUTROPIN AQ [Suspect]
     Indication: GROWTH HORMONE DEFICIENCY
     Route: 058
  2. ALBUTEROL [Concomitant]

REACTIONS (3)
  - Wheezing [Unknown]
  - Scoliosis [Unknown]
  - Headache [Unknown]
